FAERS Safety Report 18265334 (Version 1)
Quarter: 2020Q3

REPORT INFORMATION
  Report Type: Spontaneous
  Country: US (occurrence: US)
  Receive Date: 20200915
  Receipt Date: 20200915
  Transmission Date: 20201103
  Serious: No
  Sender: FDA-Public Use
  Company Number: US-CIPLA LTD.-2019US06148

PATIENT

DRUGS (2)
  1. TROSPIUM [Suspect]
     Active Substance: TROSPIUM
     Indication: URINARY INCONTINENCE
     Dosage: 20 MILLIGRAM, BID
     Route: 048
     Dates: start: 201904, end: 201906
  2. TROSPIUM [Suspect]
     Active Substance: TROSPIUM
     Dosage: 20 MILLIGRAM, BID (ONCE IN THE MORNING AND ONCE AT THE NIGHT)
     Route: 048
     Dates: start: 201907

REACTIONS (1)
  - Drug ineffective [Unknown]

NARRATIVE: CASE EVENT DATE: 201907
